FAERS Safety Report 4966946-0 (Version None)
Quarter: 2006Q2

REPORT INFORMATION
  Report Type: 
  Country: None (occurrence: None)
  Receive Date: 20060407
  Receipt Date: 20050420
  Transmission Date: 20061013
  Serious: Yes (Hospitalization, Disabling)
  Sender: FDA-Public Use
  Company Number: US-MERCK-0504USA03938

PATIENT
  Age: 74 Year
  Sex: Female
  Weight: 79 kg

DRUGS (1)
  1. VIOXX [Suspect]
     Indication: POLYARTHRITIS
     Route: 048
     Dates: start: 20000101, end: 20040923

REACTIONS (39)
  - ANAEMIA MACROCYTIC [None]
  - ANXIETY DISORDER [None]
  - ATRIAL SEPTAL DEFECT [None]
  - BACTERAEMIA [None]
  - CEREBROVASCULAR ACCIDENT [None]
  - CHEST PAIN [None]
  - COLD SWEAT [None]
  - COLONIC POLYP [None]
  - CONSTIPATION [None]
  - CORONARY ARTERY DISEASE [None]
  - DEEP VEIN THROMBOSIS [None]
  - DIARRHOEA [None]
  - DIVERTICULUM [None]
  - DIZZINESS [None]
  - DYSPEPSIA [None]
  - FATIGUE [None]
  - HAEMORRHOIDS [None]
  - HEADACHE [None]
  - HEART RATE INCREASED [None]
  - HIATUS HERNIA [None]
  - HYPERCHOLESTEROLAEMIA [None]
  - HYPERGLYCAEMIA [None]
  - HYPERLIPIDAEMIA [None]
  - HYPERTENSION [None]
  - HYPERTRIGLYCERIDAEMIA [None]
  - HYPOVOLAEMIA [None]
  - JOINT INJURY [None]
  - MYOCARDIAL INFARCTION [None]
  - NEUTROPENIA [None]
  - OSTEOARTHRITIS [None]
  - PAIN IN EXTREMITY [None]
  - PRODUCTIVE COUGH [None]
  - PULMONARY MASS [None]
  - PYELONEPHRITIS [None]
  - RENAL CYST [None]
  - SCIATICA [None]
  - STRESS [None]
  - SYNCOPE [None]
  - TINNITUS [None]
